FAERS Safety Report 5063166-9 (Version None)
Quarter: 2006Q3

REPORT INFORMATION
  Report Type: 
  Country: None (occurrence: None)
  Receive Date: 20060727
  Receipt Date: 20060724
  Transmission Date: 20061208
  Serious: Yes (Hospitalization)
  Sender: FDA-Public Use
  Company Number: 2006AC01367

PATIENT
  Age: 16391 Day
  Sex: Male
  Weight: 90 kg

DRUGS (1)
  1. LOSEC MUPS [Suspect]
     Indication: GASTROOESOPHAGEAL REFLUX DISEASE
     Route: 048
     Dates: start: 20060428

REACTIONS (1)
  - ATRIAL FIBRILLATION [None]
